FAERS Safety Report 9684723 (Version 1)
Quarter: 2013Q4

REPORT INFORMATION
  Report Type: Spontaneous
  Country: US (occurrence: None)
  Receive Date: 20131108
  Receipt Date: 20131108
  Transmission Date: 20140711
  Serious: Yes (Disabling)
  Sender: FDA-Public Use
  Company Number: ACO_39298_2013

PATIENT
  Age: 84 Year
  Sex: Female
  Weight: 71.7 kg

DRUGS (2)
  1. AMPYRA [Suspect]
     Indication: GAIT DISTURBANCE
     Dates: start: 20131030, end: 20131104
  2. AMPYRA [Suspect]
     Indication: MULTIPLE SCLEROSIS
     Dates: start: 20131030, end: 20131104

REACTIONS (12)
  - Muscle spasticity [None]
  - Joint lock [None]
  - Abasia [None]
  - Mobility decreased [None]
  - Gait disturbance [None]
  - Anxiety [None]
  - Nervousness [None]
  - Depression [None]
  - Tremor [None]
  - Paraesthesia [None]
  - Asthenia [None]
  - Drug dose omission [None]
